FAERS Safety Report 9139936 (Version 3)
Quarter: 2013Q2

REPORT INFORMATION
  Report Type: Report from Study
  Country: US (occurrence: US)
  Receive Date: 20130305
  Receipt Date: 20130418
  Transmission Date: 20140414
  Serious: Yes (Death, Hospitalization)
  Sender: FDA-Public Use
  Company Number: US-ACTELION-A-NJ2013-78124

PATIENT
  Age: 80 Year
  Sex: Male

DRUGS (3)
  1. TRACLEER [Suspect]
     Indication: PULMONARY ARTERIAL HYPERTENSION
     Dosage: UNK
     Route: 048
     Dates: end: 201302
  2. TRACLEER [Suspect]
     Dosage: UNK
     Route: 048
     Dates: start: 2013
  3. ADCIRCA [Concomitant]

REACTIONS (10)
  - Death [Fatal]
  - Pericarditis infective [Unknown]
  - Pleural effusion [Recovering/Resolving]
  - Amnesia [Unknown]
  - Feeling abnormal [Unknown]
  - Gout [Recovering/Resolving]
  - Fluid retention [Unknown]
  - Fatigue [Unknown]
  - Hypotension [Recovering/Resolving]
  - Dyspnoea [Recovering/Resolving]
